FAERS Safety Report 9938635 (Version 3)
Quarter: 2014Q2

REPORT INFORMATION
  Report Type: Spontaneous
  Country: US (occurrence: US)
  Receive Date: 20140303
  Receipt Date: 20140602
  Transmission Date: 20141212
  Serious: Yes (Hospitalization)
  Sender: FDA-Public Use
  Company Number: US-BAYER-2014-030670

PATIENT
  Age: 31 Year
  Sex: Female
  Weight: 86 kg

DRUGS (4)
  1. MIRENA [Suspect]
     Indication: CONTRACEPTION
     Dosage: 20 MCG/24HR, CONT
     Route: 015
     Dates: start: 200606, end: 200802
  2. MOTRIN [Concomitant]
  3. B12 [Concomitant]
     Dosage: 4 A WEEK
  4. VITAMIN B6 [Concomitant]
     Indication: WEIGHT DECREASED

REACTIONS (9)
  - Uterine perforation [None]
  - Medical device pain [None]
  - Procedural pain [None]
  - Infertility female [None]
  - Depression [None]
  - Mental disorder [None]
  - Frustration [None]
  - Injury [None]
  - Emotional distress [None]
